FAERS Safety Report 24085800 (Version 1)
Quarter: 2024Q3

REPORT INFORMATION
  Report Type: Spontaneous
  Country: US (occurrence: None)
  Receive Date: 20240712
  Receipt Date: 20240712
  Transmission Date: 20241016
  Serious: Yes (Hospitalization)
  Sender: Public
  Company Number: None

PATIENT
  Sex: Female

DRUGS (3)
  1. TADALAFIL [Suspect]
     Active Substance: TADALAFIL
     Indication: Pulmonary arterial hypertension
     Dosage: FREQUENCY : DAILY;?
     Route: 048
     Dates: start: 202112
  2. TREPROSTINIL DIOLAMINE [Concomitant]
     Active Substance: TREPROSTINIL DIOLAMINE
  3. OPSUMIT [Concomitant]
     Active Substance: MACITENTAN

REACTIONS (1)
  - Fluid retention [None]
